FAERS Safety Report 11284434 (Version 2)
Quarter: 2024Q3

REPORT INFORMATION
  Report Type: Report from Study
  Country: US (occurrence: US)
  Receive Date: 20150720
  Receipt Date: 20240829
  Transmission Date: 20241017
  Serious: No
  Sender: TAKEDA
  Company Number: US-TAKEDA-2015TUS002793

PATIENT
  Sex: Female
  Weight: 76 kg

DRUGS (2)
  1. VEDOLIZUMAB [Suspect]
     Active Substance: VEDOLIZUMAB
     Indication: Crohn^s disease
     Dosage: 300 MILLIGRAM
     Route: 042
     Dates: start: 20150212
  2. LEVOTHYROXINE [Concomitant]
     Active Substance: LEVOTHYROXINE\LEVOTHYROXINE SODIUM
     Indication: Hypothyroidism
     Dosage: UNK
     Route: 048

REACTIONS (4)
  - Sinus headache [Recovering/Resolving]
  - Upper-airway cough syndrome [Recovering/Resolving]
  - Body temperature increased [Recovering/Resolving]
  - Pharyngitis [Recovering/Resolving]
